FAERS Safety Report 5669182-8 (Version None)
Quarter: 2008Q1

REPORT INFORMATION
  Report Type: 
  Country: None (occurrence: None)
  Receive Date: 20080317
  Receipt Date: 20080317
  Transmission Date: 20080703
  Serious: Yes (Other)
  Sender: FDA-Public Use
  Company Number: None

PATIENT
  Age: 53 Year
  Sex: Female
  Weight: 83.9154 kg

DRUGS (1)
  1. HEPARIN [Suspect]
     Dosage: 10,000 2 TIMES DAILY SQ
     Route: 058
     Dates: start: 20060525, end: 20080306

REACTIONS (7)
  - ALOPECIA [None]
  - CONCOMITANT DISEASE AGGRAVATED [None]
  - DIZZINESS [None]
  - FATIGUE [None]
  - HEADACHE [None]
  - NAUSEA [None]
  - PHARMACEUTICAL PRODUCT COMPLAINT [None]
